FAERS Safety Report 12769267 (Version 2)
Quarter: 2016Q4

REPORT INFORMATION
  Report Type: Spontaneous
  Country: US (occurrence: US)
  Receive Date: 20160921
  Receipt Date: 20161107
  Transmission Date: 20170207
  Serious: Yes (Hospitalization, Other)
  Sender: FDA-Public Use
  Company Number: US-SMITH AND NEPHEW, INC-2016SMT00804

PATIENT
  Age: 65 Year
  Sex: Male
  Weight: 63.49 kg

DRUGS (12)
  1. REGRANEX [Suspect]
     Active Substance: BECAPLERMIN
     Indication: DIABETIC ULCER
     Dosage: UNK UNK, 1X/DAY
     Route: 061
     Dates: start: 201608, end: 20160804
  2. CARVEDILOL. [Concomitant]
     Active Substance: CARVEDILOL
  3. ADVAIR DISKUS [Concomitant]
     Active Substance: FLUTICASONE PROPIONATE\SALMETEROL XINAFOATE
  4. CRESTOR [Concomitant]
     Active Substance: ROSUVASTATIN CALCIUM
  5. PROTONIX [Concomitant]
     Active Substance: PANTOPRAZOLE SODIUM
  6. REGRANEX [Suspect]
     Active Substance: BECAPLERMIN
     Dosage: UNK, 1X/DAY
     Route: 061
     Dates: start: 20160809, end: 20160814
  7. REGRANEX [Suspect]
     Active Substance: BECAPLERMIN
     Dosage: UNK, 1X/DAY
     Route: 061
     Dates: start: 20160820, end: 20160823
  8. BRILINTA [Concomitant]
     Active Substance: TICAGRELOR
  9. RAMIPRIL. [Concomitant]
     Active Substance: RAMIPRIL
  10. ATIVAN [Concomitant]
     Active Substance: LORAZEPAM
  11. PAROXETINE. [Concomitant]
     Active Substance: PAROXETINE
  12. UNSPECIFIED DIALYSIS MEDICATION [Concomitant]

REACTIONS (9)
  - Cardiac pacemaker replacement [Unknown]
  - Cardiac failure acute [Recovering/Resolving]
  - Wound infection [Recovered/Resolved]
  - Foot fracture [Unknown]
  - Toe amputation [Recovered/Resolved with Sequelae]
  - Gangrene [Recovered/Resolved]
  - Implantable defibrillator replacement [Unknown]
  - Panic attack [Unknown]
  - Anaemia of chronic disease [Unknown]

NARRATIVE: CASE EVENT DATE: 201608
